FAERS Safety Report 5699706-6 (Version None)
Quarter: 2008Q2

REPORT INFORMATION
  Report Type: 
  Country: None (occurrence: None)
  Receive Date: 20080410
  Receipt Date: 20080328
  Transmission Date: 20081010
  Serious: Yes (Other)
  Sender: FDA-Public Use
  Company Number: PHBS2007JP20898

PATIENT
  Age: 74 Year
  Sex: Male

DRUGS (7)
  1. ZOMETA [Suspect]
     Indication: METASTASES TO BONE
  2. RADIOTHERAPY [Concomitant]
     Dates: start: 20071120
  3. CARBENIN [Concomitant]
     Dates: start: 20071205, end: 20071208
  4. ANTIBIOTICS [Concomitant]
     Indication: INFECTION
  5. TS-1 [Concomitant]
     Indication: BILE DUCT CANCER
     Dosage: UNK, UNK
     Route: 048
     Dates: start: 20071001
  6. WYSTAL [Suspect]
     Indication: CHOLANGITIS
     Dosage: 4 G, UNK
     Route: 042
     Dates: start: 20071130, end: 20071204
  7. OXYCONTIN [Concomitant]
     Indication: BILE DUCT CANCER
     Route: 048
     Dates: start: 20071120

REACTIONS (16)
  - ALTERED STATE OF CONSCIOUSNESS [None]
  - ANORECTAL DISORDER [None]
  - BLADDER DISORDER [None]
  - C-REACTIVE PROTEIN INCREASED [None]
  - CHOLANGITIS [None]
  - FALL [None]
  - HYPERCOAGULATION [None]
  - INFECTION [None]
  - MUSCULAR WEAKNESS [None]
  - MYELITIS [None]
  - OXYGEN SATURATION DECREASED [None]
  - PARAPLEGIA [None]
  - PYREXIA [None]
  - SENSORY DISTURBANCE [None]
  - SPINAL CORD INFARCTION [None]
  - THROMBOSIS [None]
